FAERS Safety Report 10182531 (Version 1)
Quarter: 2014Q2

REPORT INFORMATION
  Report Type: Spontaneous
  Country: US (occurrence: None)
  Receive Date: 20140516
  Receipt Date: 20140516
  Transmission Date: 20141212
  Serious: Yes (Hospitalization)
  Sender: FDA-Public Use
  Company Number: UNT-2014-000110

PATIENT
  Age: 76 Year
  Sex: Female

DRUGS (8)
  1. REMODULIN [Suspect]
     Indication: PULMONARY ARTERIAL HYPERTENSION
     Route: 042
     Dates: start: 20140205
  2. MACITENTAN (MACITENTAN) [Concomitant]
  3. SPIRONOLACTONE (SPIRONOLACTONE) [Concomitant]
  4. PROTONIX (PANTOPRAZOLE SODIUM) [Concomitant]
  5. FUROSEMIDE (FUROSEMIDE) [Concomitant]
  6. BABY ASPIRIN (ACETYLSALICYLIC ACID) [Concomitant]
  7. SILDENAFIL (SILDENAFIL) [Concomitant]
  8. LISINOPIRL (LISINOPRIL) [Concomitant]

REACTIONS (1)
  - Pneumonia [None]
